FAERS Safety Report 26037200 (Version 2)
Quarter: 2025Q4

REPORT INFORMATION
  Report Type: Spontaneous
  Country: US (occurrence: US)
  Receive Date: 20251112
  Receipt Date: 20251118
  Transmission Date: 20260118
  Serious: Yes (Other)
  Sender: ABBVIE
  Company Number: US-ABBVIE-6538129

PATIENT
  Age: 70 Year
  Sex: Female

DRUGS (1)
  1. REFRESH CELLUVISC [Suspect]
     Active Substance: CARBOXYMETHYLCELLULOSE SODIUM
     Indication: Dry eye
     Dosage: PATIENT ROA: OPHTHALMIC
     Route: 065

REACTIONS (11)
  - Cataract [Not Recovered/Not Resolved]
  - Herpes zoster [Unknown]
  - Product packaging quantity issue [Not Recovered/Not Resolved]
  - Asthenopia [Unknown]
  - Pain [Unknown]
  - Blindness [Unknown]
  - Product container issue [Unknown]
  - Hypoaesthesia [Unknown]
  - Burning sensation [Unknown]
  - Photophobia [Unknown]
  - Foreign body sensation in eyes [Unknown]

NARRATIVE: CASE EVENT DATE: 20251113
